FAERS Safety Report 15979902 (Version 10)
Quarter: 2022Q4

REPORT INFORMATION
  Report Type: Spontaneous
  Country: CA (occurrence: CA)
  Receive Date: 20190219
  Receipt Date: 20221212
  Transmission Date: 20230112
  Serious: Yes (Other)
  Sender: FDA-Public Use
  Company Number: CA-CELLTRION INC.-2019CA018765

PATIENT

DRUGS (42)
  1. INFLECTRA [Suspect]
     Active Substance: INFLIXIMAB-DYYB
     Indication: Crohn^s disease
     Dosage: 350 MG, Q 2,6 WEEKS THEN EVERY 8 WEEKS
     Route: 042
     Dates: start: 20190128
  2. INFLECTRA [Suspect]
     Active Substance: INFLIXIMAB-DYYB
     Dosage: 350 MG, Q 2,6 WEEKS THEN EVERY 8 WEEKS
     Route: 042
     Dates: start: 20190128, end: 20220526
  3. INFLECTRA [Suspect]
     Active Substance: INFLIXIMAB-DYYB
     Dosage: 350 MG, Q 2,6 WEEKS THEN EVERY 8 WEEKS
     Route: 042
     Dates: start: 20190211
  4. INFLECTRA [Suspect]
     Active Substance: INFLIXIMAB-DYYB
     Dosage: 350 MG, Q 2,6 WEEKS THEN EVERY 8 WEEKS
     Route: 042
     Dates: start: 20190702
  5. INFLECTRA [Suspect]
     Active Substance: INFLIXIMAB-DYYB
     Dosage: 350 MG, Q 2,6 WEEKS THEN EVERY 8 WEEKS
     Route: 042
     Dates: start: 20190903
  6. INFLECTRA [Suspect]
     Active Substance: INFLIXIMAB-DYYB
     Dosage: 350 MG, Q 2,6 WEEKS THEN EVERY 8 WEEKS
     Route: 042
     Dates: start: 20191231
  7. INFLECTRA [Suspect]
     Active Substance: INFLIXIMAB-DYYB
     Dosage: 350 MG, Q 2,6 WEEKS THEN EVERY 8 WEEKS
     Route: 042
     Dates: start: 20200225
  8. INFLECTRA [Suspect]
     Active Substance: INFLIXIMAB-DYYB
     Dosage: 350 MG, Q 2,6 WEEKS THEN EVERY 8 WEEKS
     Route: 042
     Dates: start: 20200618
  9. INFLECTRA [Suspect]
     Active Substance: INFLIXIMAB-DYYB
     Dosage: 350 MG, Q 2,6 WEEKS THEN EVERY 8 WEEKS
     Route: 042
     Dates: start: 20200817
  10. INFLECTRA [Suspect]
     Active Substance: INFLIXIMAB-DYYB
     Dosage: 350 MG, Q 2,6 WEEKS THEN EVERY 8 WEEKS
     Route: 042
     Dates: start: 20201105
  11. INFLECTRA [Suspect]
     Active Substance: INFLIXIMAB-DYYB
     Dosage: 350 MG, Q 2,6 WEEKS THEN EVERY 8 WEEKS
     Route: 042
     Dates: start: 20210105
  12. INFLECTRA [Suspect]
     Active Substance: INFLIXIMAB-DYYB
     Dosage: 350 MG, Q 2,6 WEEKS THEN EVERY 8 WEEKS
     Route: 042
     Dates: start: 20210302
  13. INFLECTRA [Suspect]
     Active Substance: INFLIXIMAB-DYYB
     Dosage: 350 MG, Q 2,6 WEEKS THEN EVERY 8 WEEKS
     Route: 042
     Dates: start: 20210427
  14. INFLECTRA [Suspect]
     Active Substance: INFLIXIMAB-DYYB
     Dosage: 350 MG, Q 2,6 WEEKS THEN EVERY 8 WEEKS
     Route: 042
     Dates: start: 20210623
  15. INFLECTRA [Suspect]
     Active Substance: INFLIXIMAB-DYYB
     Dosage: 350 MG, Q 2,6 WEEKS THEN EVERY 8 WEEKS
     Route: 042
     Dates: start: 20210818
  16. INFLECTRA [Suspect]
     Active Substance: INFLIXIMAB-DYYB
     Dosage: 350 MG, Q 2,6 WEEKS THEN EVERY 8 WEEKS
     Route: 042
     Dates: start: 20211013
  17. INFLECTRA [Suspect]
     Active Substance: INFLIXIMAB-DYYB
     Dosage: 350 MG, Q 2,6 WEEKS THEN EVERY 8 WEEKS
     Route: 042
     Dates: start: 20211208
  18. INFLECTRA [Suspect]
     Active Substance: INFLIXIMAB-DYYB
     Dosage: 350 MG, Q 2,6 WEEKS THEN EVERY 8 WEEKS
     Route: 042
     Dates: start: 20220202
  19. INFLECTRA [Suspect]
     Active Substance: INFLIXIMAB-DYYB
     Dosage: 350 MG, Q 2,6 WEEKS THEN EVERY 8 WEEKS
     Route: 042
     Dates: start: 20220330
  20. INFLECTRA [Suspect]
     Active Substance: INFLIXIMAB-DYYB
     Dosage: 350 MG, Q 2,6 WEEKS THEN EVERY 8 WEEKS
     Route: 042
     Dates: start: 20220526
  21. INFLECTRA [Suspect]
     Active Substance: INFLIXIMAB-DYYB
     Dosage: 400 MG EVERY 4 WEEKS
     Route: 042
     Dates: start: 20220623
  22. INFLECTRA [Suspect]
     Active Substance: INFLIXIMAB-DYYB
     Dosage: 400 MG, EVERY 4 WEEKS
     Route: 042
     Dates: start: 20220914
  23. INFLECTRA [Suspect]
     Active Substance: INFLIXIMAB-DYYB
     Dosage: 400 MG, EVERY 4 WEEKS
     Route: 042
     Dates: start: 20221021
  24. INFLECTRA [Suspect]
     Active Substance: INFLIXIMAB-DYYB
     Dosage: 400 MG, EVERY 4 WEEKS
     Route: 042
     Dates: start: 20221201
  25. ACETAMINOPHEN [Concomitant]
     Active Substance: ACETAMINOPHEN
     Dosage: 325 MG
  26. CEFTRIAXONE [Concomitant]
     Active Substance: CEFTRIAXONE
     Dosage: 1000 MG
     Route: 065
  27. CEFTRIAXONE [Concomitant]
     Active Substance: CEFTRIAXONE
     Dosage: 1000 MG,FREQUENCY: NOT PROVIDED
     Route: 065
  28. CIPROFLOXACIN [Concomitant]
     Active Substance: CIPROFLOXACIN
     Dosage: UNK
  29. DALTEPARIN [Concomitant]
     Active Substance: DALTEPARIN
     Dosage: UNK (5000 UNITS/0.2 ML)
     Route: 058
     Dates: start: 20190122
  30. DALTEPARIN [Concomitant]
     Active Substance: DALTEPARIN
     Dosage: 1 DF(5000U/0.2 ML),FREQUENCY: NOT PROVIDED
     Route: 058
  31. DIMENHYDRINATE [Concomitant]
     Active Substance: DIMENHYDRINATE
     Dosage: 50 MG
  32. IBUPROFEN [Concomitant]
     Active Substance: IBUPROFEN
     Dosage: UNK
     Route: 065
  33. IBUPROFEN [Concomitant]
     Active Substance: IBUPROFEN
     Dosage: 1 DF
     Route: 065
  34. IBUPROFEN [Concomitant]
     Active Substance: IBUPROFEN
     Dosage: 200 MG,FREQUENCY: NOT PROVIDED
     Route: 065
  35. IMURAN [Concomitant]
     Active Substance: AZATHIOPRINE
     Dosage: 175 MG, 1X/DAY
     Route: 048
  36. METHYLPREDNISOLONE [Concomitant]
     Active Substance: METHYLPREDNISOLONE
     Dosage: 40 MG, DAILY FOR 2 DAYS, THEN 30 MG DAILY FOR 7 DAYS
     Route: 042
  37. METHYLPREDNISOLONE [Concomitant]
     Active Substance: METHYLPREDNISOLONE
     Dosage: 30 MG DAILY FOR 7 DAYS
     Route: 042
  38. METHYLPREDNISOLONE [Concomitant]
     Active Substance: METHYLPREDNISOLONE
     Dosage: 40 MG, DAILY FOR 2 DAYS, THEN 30 MG IV DAILY FOR 7 DAYS
     Route: 042
  39. METRONIDAZOLE [Concomitant]
     Active Substance: METRONIDAZOLE
     Dosage: 500 MG,FREQUENCY: NOT PROVIDED
     Route: 065
  40. ONDANSETRON [Concomitant]
     Active Substance: ONDANSETRON
     Dosage: 4 MG,FREQUENCY: NOT PROVIDED
     Route: 065
  41. PIPERACILLIN AND TAZOBACTAM [Concomitant]
     Active Substance: PIPERACILLIN SODIUM\TAZOBACTAM SODIUM
     Dosage: UNK
  42. PREDNISONE [Concomitant]
     Active Substance: PREDNISONE
     Dosage: 5 MG, 1X/DAY
     Route: 048

REACTIONS (19)
  - Terminal ileitis [Unknown]
  - Therapeutic response shortened [Unknown]
  - Off label use [Unknown]
  - Inappropriate schedule of product administration [Unknown]
  - Weight increased [Unknown]
  - Weight decreased [Unknown]
  - Inflammation [Unknown]
  - Fistula [Not Recovered/Not Resolved]
  - Poor venous access [Unknown]
  - Loss of personal independence in daily activities [Not Recovered/Not Resolved]
  - Oropharyngeal pain [Unknown]
  - Drug level below therapeutic [Unknown]
  - Blood pressure fluctuation [Unknown]
  - Blood pressure diastolic decreased [Unknown]
  - Condition aggravated [Recovered/Resolved]
  - Cough [Unknown]
  - Diarrhoea [Not Recovered/Not Resolved]
  - Pyrexia [Not Recovered/Not Resolved]
  - Suspected COVID-19 [Unknown]

NARRATIVE: CASE EVENT DATE: 20190101
